FAERS Safety Report 11719954 (Version 3)
Quarter: 2016Q1

REPORT INFORMATION
  Report Type: Report from Study
  Country: NL (occurrence: NL)
  Receive Date: 20151110
  Receipt Date: 20160111
  Transmission Date: 20160525
  Serious: Yes (Death, Hospitalization, Other)
  Sender: FDA-Public Use
  Company Number: NL-ABBVIE-15P-114-1493216-00

PATIENT
  Age: 67 Year
  Sex: Male
  Weight: 77 kg

DRUGS (1)
  1. DUODOPA [Suspect]
     Active Substance: CARBIDOPA\LEVODOPA
     Indication: PARKINSON^S DISEASE
     Dosage: 20/5MG/ML; MD: 12.3 CD: 5, ED: 3, ND: 3.4
     Route: 050
     Dates: start: 20131107, end: 20151105

REACTIONS (9)
  - Aspiration [Fatal]
  - Condition aggravated [Fatal]
  - Weight decreased [Not Recovered/Not Resolved]
  - Bedridden [Fatal]
  - Psychotic behaviour [Recovered/Resolved]
  - Dyspnoea [Fatal]
  - Decubitus ulcer [Fatal]
  - Hallucination [Recovered/Resolved]
  - Hospitalisation [Unknown]

NARRATIVE: CASE EVENT DATE: 201502
